FAERS Safety Report 6887968-9 (Version None)
Quarter: 2010Q3

REPORT INFORMATION
  Report Type: 
  Country: None (occurrence: None)
  Receive Date: 20100730
  Receipt Date: 20100720
  Transmission Date: 20110219
  Serious: Yes (Hospitalization)
  Sender: FDA-Public Use
  Company Number: A0857354A

PATIENT
  Age: 69 Year
  Sex: Male
  Weight: 96.8 kg

DRUGS (2)
  1. AVANDIA [Suspect]
     Indication: DIABETES MELLITUS
     Dosage: 8MG TWICE PER DAY
     Route: 048
  2. ACTOS [Concomitant]

REACTIONS (5)
  - INFECTION [None]
  - LOCALISED INFECTION [None]
  - MYOCARDIAL INFARCTION [None]
  - OEDEMA PERIPHERAL [None]
  - RENAL FAILURE [None]
